FAERS Safety Report 18507017 (Version 1)
Quarter: 2020Q4

REPORT INFORMATION
  Report Type: Spontaneous
  Country: US (occurrence: US)
  Receive Date: 20201115
  Receipt Date: 20201115
  Transmission Date: 20210114
  Serious: Yes (Other)
  Sender: FDA-Public Use
  Company Number: None

PATIENT
  Age: 39 Year
  Sex: Female
  Weight: 54 kg

DRUGS (3)
  1. AUGMENTIN [Concomitant]
     Active Substance: AMOXICILLIN\CLAVULANATE POTASSIUM
     Dates: start: 20201019, end: 20201029
  2. CLINDAMYCIN. [Suspect]
     Active Substance: CLINDAMYCIN
     Indication: ORAL INFECTION
     Route: 048
     Dates: start: 20201110, end: 20201112
  3. METRONIDAZOLE. [Concomitant]
     Active Substance: METRONIDAZOLE
     Dates: start: 20201113

REACTIONS (10)
  - Skin burning sensation [None]
  - Lip swelling [None]
  - Oropharyngeal pain [None]
  - Malaise [None]
  - Disease progression [None]
  - Aphthous ulcer [None]
  - Eye irritation [None]
  - Eye swelling [None]
  - Thirst [None]
  - Nausea [None]

NARRATIVE: CASE EVENT DATE: 20201112
